FAERS Safety Report 6872273-7 (Version None)
Quarter: 2010Q3

REPORT INFORMATION
  Report Type: 
  Country: None (occurrence: None)
  Receive Date: 20100723
  Receipt Date: 20100714
  Transmission Date: 20110219
  Serious: Yes (Death)
  Sender: FDA-Public Use
  Company Number: PT-ROCHE-715584

PATIENT
  Sex: Female

DRUGS (3)
  1. AVASTIN [Suspect]
     Dosage: REPORTED AS: AVASTIN-CONCENTRATE FOR SOLUTION FOR INFUSION 25MG/ML, FREQUENCY-DAILY
     Route: 031
     Dates: start: 20080103, end: 20080619
  2. ASPIRIN [Concomitant]
     Dosage: FREQUENCY: DAILY
     Route: 048
  3. LOSARTAN POTASSIUM [Concomitant]
     Dosage: FREQUENCY: DAILY
     Route: 048

REACTIONS (2)
  - OFF LABEL USE [None]
  - SUDDEN DEATH [None]
